FAERS Safety Report 5534473-8 (Version None)
Quarter: 2007Q4

REPORT INFORMATION
  Report Type: 
  Country: None (occurrence: None)
  Receive Date: 20071119
  Receipt Date: 20070925
  Transmission Date: 20080405
  Serious: No
  Sender: FDA-Public Use
  Company Number: TPA2007A01565

PATIENT
  Age: 70 Year
  Sex: Female

DRUGS (1)
  1. ROZEREM [Suspect]
     Dosage: 8 MG, PER ORAL
     Route: 048

REACTIONS (6)
  - ADVERSE DRUG REACTION [None]
  - CHEST DISCOMFORT [None]
  - FEELING JITTERY [None]
  - NERVOUSNESS [None]
  - PRURITUS [None]
  - TREMOR [None]
